FAERS Safety Report 4522233-6 (Version None)
Quarter: 2004Q4

REPORT INFORMATION
  Report Type: 
  Country: None (occurrence: None)
  Receive Date: 20041206
  Receipt Date: 20041124
  Transmission Date: 20050328
  Serious: Yes (Hospitalization)
  Sender: FDA-Public Use
  Company Number: STA-AE-04-MTX-597

PATIENT
  Age: 66 Year
  Sex: Male

DRUGS (3)
  1. METHOTREXATE [Suspect]
     Indication: RHEUMATOID ARTHRITIS
     Dosage: 10 MG 1X PER 1 WK, ORAL
     Route: 048
     Dates: start: 20020601
  2. CORTICOSTEROIDS [Concomitant]
  3. UNSPECIFIED ANTI-INFLAMMATORY AGENT [Concomitant]

REACTIONS (4)
  - ANAEMIA POSTOPERATIVE [None]
  - IMPLANT SITE INFECTION [None]
  - PAIN [None]
  - STAPHYLOCOCCAL INFECTION [None]
